FAERS Safety Report 6201034-7 (Version None)
Quarter: 2009Q2

REPORT INFORMATION
  Report Type: 
  Country: None (occurrence: None)
  Receive Date: 20090526
  Receipt Date: 20090518
  Transmission Date: 20091009
  Serious: Yes (Other)
  Sender: FDA-Public Use
  Company Number: US-ELI_LILLY_AND_COMPANY-US200905004000

PATIENT
  Sex: Female

DRUGS (4)
  1. HUMALOG MIX 75/25 [Suspect]
     Dates: start: 20010101
  2. HUMALOG MIX 75/25 [Suspect]
     Dates: start: 20010101
  3. TOPROL-XL [Concomitant]
     Indication: BLOOD PRESSURE INCREASED
  4. DIOVAN [Concomitant]

REACTIONS (3)
  - BLINDNESS UNILATERAL [None]
  - RETINAL DETACHMENT [None]
  - VISUAL ACUITY REDUCED [None]
